FAERS Safety Report 10176725 (Version 2)
Quarter: 2014Q3

REPORT INFORMATION
  Report Type: Spontaneous
  Country: GB (occurrence: GB)
  Receive Date: 20140516
  Receipt Date: 20140718
  Transmission Date: 20150326
  Serious: Yes (Disabling, Other)
  Sender: FDA-Public Use
  Company Number: GB-ABBVIE-14P-167-1237891-00

PATIENT
  Sex: Male
  Weight: 27.5 kg

DRUGS (7)
  1. CREON 10,000 CAPSULES [Suspect]
     Active Substance: PANCRELIPASE
     Indication: PANCREATIC INSUFFICIENCY
  2. COLOMYCIN [Concomitant]
     Active Substance: COLISTIN
     Indication: CYSTIC FIBROSIS
     Dosage: 2 MU. ROUTE: NEB; LONG TERM
  3. MULTIVITAMINS [Concomitant]
     Active Substance: VITAMINS
     Indication: CYSTIC FIBROSIS
     Dosage: DAILY DOSE 1 TABLET; LONG TERM
     Route: 048
  4. LANSOPRAZOLE. [Concomitant]
     Active Substance: LANSOPRAZOLE
     Indication: CYSTIC FIBROSIS
     Dosage: DAILY DOSE: 15 MG; LONG TERM
     Route: 048
  5. VITAMIN E [Concomitant]
     Active Substance: .ALPHA.-TOCOPHEROL
     Indication: CYSTIC FIBROSIS
     Dosage: DAILY DOSE:75 IU; LONG TERM
     Route: 048
  6. HYPERTONIC SALINE SOLUTION [Concomitant]
     Active Substance: SODIUM CHLORIDE
     Indication: CYSTIC FIBROSIS
     Dosage: DAILY DOSE: 8 ML; ROUTE: NEB.; LONG TERM
  7. CREON 10,000 CAPSULES [Suspect]
     Active Substance: PANCRELIPASE
     Indication: CYSTIC FIBROSIS
     Dosage: 10,000. 22-25 CAPSULES PER DAY, TAKEN WITH FOOD. VARIES WITH DIET. TDS AND WITH SNACKS
     Route: 048

REACTIONS (10)
  - Drug ineffective [Not Recovered/Not Resolved]
  - Flatulence [Recovered/Resolved]
  - Diarrhoea [Recovered/Resolved]
  - Gastrointestinal pain [Not Recovered/Not Resolved]
  - Product substitution issue [None]
  - Faeces pale [Not Recovered/Not Resolved]
  - Extra dose administered [Not Recovered/Not Resolved]
  - Gastrointestinal disorder [Not Recovered/Not Resolved]
  - Malabsorption [Not Recovered/Not Resolved]
  - Abdominal pain [Recovered/Resolved]

NARRATIVE: CASE EVENT DATE: 2014
